FAERS Safety Report 5358867-9 (Version None)
Quarter: 2007Q2

REPORT INFORMATION
  Report Type: 
  Country: None (occurrence: None)
  Receive Date: 20070615
  Receipt Date: 20070612
  Transmission Date: 20071010
  Serious: Yes (Hospitalization)
  Sender: FDA-Public Use
  Company Number: HQWYE584012JUN07

PATIENT
  Age: 81 Year
  Sex: Female

DRUGS (1)
  1. TAZOBAC [Suspect]
     Indication: ABSCESS
     Dosage: UNKNOWN
     Route: 065

REACTIONS (1)
  - DRUG RASH WITH EOSINOPHILIA AND SYSTEMIC SYMPTOMS [None]
